FAERS Safety Report 5441892-7 (Version None)
Quarter: 2007Q3

REPORT INFORMATION
  Report Type: 
  Country: None (occurrence: None)
  Receive Date: 20070830
  Receipt Date: 20070830
  Transmission Date: 20080115
  Serious: Yes (Hospitalization)
  Sender: FDA-Public Use
  Company Number: None

PATIENT
  Sex: Male
  Weight: 100 kg

DRUGS (4)
  1. FLUOROURACIL [Suspect]
     Dosage: 6320 MG
     Dates: end: 20070808
  2. BEVACIZUMAB (RHUMAB VEGF) [Suspect]
     Dosage: 500 MG
     Dates: end: 20070808
  3. LEUCOVORIN CALCIUM [Suspect]
     Dosage: 900 MG
     Dates: end: 20070808
  4. ELOXATIN [Suspect]
     Dosage: 190 MG
     Dates: end: 20070808

REACTIONS (3)
  - ABDOMINAL PAIN UPPER [None]
  - BLOOD AMYLASE INCREASED [None]
  - LIPASE INCREASED [None]
